FAERS Safety Report 6382264-0 (Version None)
Quarter: 2009Q3

REPORT INFORMATION
  Report Type: 
  Country: None (occurrence: None)
  Receive Date: 20090928
  Receipt Date: 20090928
  Transmission Date: 20100115
  Serious: Yes (Disabling)
  Sender: FDA-Public Use
  Company Number: None

PATIENT
  Age: 86 Year
  Sex: Female
  Weight: 72.5755 kg

DRUGS (6)
  1. HALOPERIDOL [Suspect]
     Indication: AGITATION
     Dosage: 0.5MG EVERY 8 HOURS 030
     Dates: start: 20071118, end: 20071122
  2. LEXAPRO [Concomitant]
  3. CYMBALTA [Concomitant]
  4. TRUDOL [Concomitant]
  5. ARICEPT [Concomitant]
  6. XANAX [Concomitant]

REACTIONS (4)
  - ABASIA [None]
  - DYSSTASIA [None]
  - IMPAIRED SELF-CARE [None]
  - PARKINSON'S DISEASE [None]
